FAERS Safety Report 5789278-X (Version None)
Quarter: 2008Q2

REPORT INFORMATION
  Report Type: 
  Country: None (occurrence: None)
  Receive Date: 20080625
  Receipt Date: 20080625
  Transmission Date: 20081010
  Serious: Yes (Life-Threatening, Hospitalization, Other)
  Sender: FDA-Public Use
  Company Number: None

PATIENT
  Age: 61 Year
  Sex: Male
  Weight: 90.7194 kg

DRUGS (1)
  1. LISINOPRIL [Suspect]
     Indication: HYPERTENSION
     Dosage: 20 MG 1/DAY PO
     Route: 048
     Dates: start: 20080425, end: 20080624

REACTIONS (7)
  - DIZZINESS [None]
  - DYSPNOEA EXERTIONAL [None]
  - HEADACHE [None]
  - HYPERTENSION [None]
  - MALAISE [None]
  - SYNCOPE [None]
  - TINNITUS [None]
